FAERS Safety Report 6041234-2 (Version None)
Quarter: 2009Q1

REPORT INFORMATION
  Report Type: 
  Country: None (occurrence: None)
  Receive Date: 20090116
  Receipt Date: 20080919
  Transmission Date: 20090719
  Serious: No
  Sender: FDA-Public Use
  Company Number: US-BRISTOL-MYERS SQUIBB COMPANY-14341630

PATIENT
  Age: 42 Year
  Sex: Female

DRUGS (2)
  1. ABILIFY [Suspect]
     Indication: DEPRESSION
     Dosage: INITIAL DOSE: 5MG QD FOR 2WEEKS
     Dates: end: 20080913
  2. LAMICTAL [Concomitant]

REACTIONS (4)
  - CHILLS [None]
  - DIZZINESS [None]
  - HYPERHIDROSIS [None]
  - PYREXIA [None]
